FAERS Safety Report 7347050-3 (Version None)
Quarter: 2011Q1

REPORT INFORMATION
  Report Type: 
  Country: None (occurrence: None)
  Receive Date: 20110303
  Receipt Date: 20110222
  Transmission Date: 20110831
  Serious: Yes (Disabling, Other)
  Sender: FDA-Public Use
  Company Number: GB-ACCORD-008230

PATIENT
  Age: 70 Year
  Sex: Male

DRUGS (6)
  1. GTN (GTN) [Concomitant]
  2. NICORANDIL (NICORANDIL) [Concomitant]
  3. SIMVASTATIN [Suspect]
     Indication: PRODUCT USED FOR UNKNOWN INDICATION
     Dates: start: 20081028
  4. RAMIPRIL [Concomitant]
  5. AMLODIPINE [Concomitant]
  6. VERTAB (VERTAB) [Concomitant]

REACTIONS (2)
  - PULMONARY FIBROSIS [None]
  - DYSPNOEA [None]
